FAERS Safety Report 12094337 (Version 5)
Quarter: 2017Q2

REPORT INFORMATION
  Report Type: Report from Study
  Country: JP (occurrence: JP)
  Receive Date: 20160219
  Receipt Date: 20170424
  Transmission Date: 20170829
  Serious: Yes (Hospitalization, Other)
  Sender: FDA-Public Use
  Company Number: JP-EISAI MEDICAL RESEARCH-EC-2016-014461

PATIENT
  Age: 84 Year
  Sex: Female
  Weight: 35 kg

DRUGS (20)
  1. OXINORM [Suspect]
     Active Substance: OXYCODONE HYDROCHLORIDE
     Indication: CANCER PAIN
     Route: 048
     Dates: start: 201508
  2. PREDONINE [Concomitant]
     Active Substance: PREDNISOLONE
  3. WARFARIN [Concomitant]
     Active Substance: WARFARIN
  4. LENVIMA [Suspect]
     Active Substance: LENVATINIB
     Route: 048
     Dates: start: 20160509, end: 20160520
  5. OXYCONTIN [Suspect]
     Active Substance: OXYCODONE HYDROCHLORIDE
     Indication: CANCER PAIN
     Route: 048
     Dates: end: 201508
  6. LEVOTHYROXINE SODIUM HYDRATE [Concomitant]
     Active Substance: LEVOTHYROXINE SODIUM
  7. LENVIMA [Suspect]
     Active Substance: LENVATINIB
     Indication: PAPILLARY THYROID CANCER
     Route: 048
     Dates: start: 20150813, end: 20150819
  8. LENVIMA [Suspect]
     Active Substance: LENVATINIB
     Route: 048
     Dates: start: 20150829, end: 20151014
  9. MAGMITT [Concomitant]
     Active Substance: MAGNESIUM OXIDE
  10. LENVIMA [Suspect]
     Active Substance: LENVATINIB
     Route: 048
     Dates: start: 20160219, end: 20160321
  11. MAINTATE [Concomitant]
     Active Substance: BISOPROLOL FUMARATE
  12. BAKTAR [Concomitant]
     Active Substance: SULFAMETHOXAZOLE\TRIMETHOPRIM
  13. LENVIMA [Suspect]
     Active Substance: LENVATINIB
     Route: 048
     Dates: start: 20151019, end: 20151101
  14. NEXIUM [Concomitant]
     Active Substance: ESOMEPRAZOLE MAGNESIUM
  15. SAMSCA [Concomitant]
     Active Substance: TOLVAPTAN
  16. FEBURIC [Concomitant]
     Active Substance: FEBUXOSTAT
  17. FRANDOL [Concomitant]
     Active Substance: ISOSORBIDE DINITRATE
  18. LENVIMA [Suspect]
     Active Substance: LENVATINIB
     Route: 048
     Dates: start: 20151109, end: 20160210
  19. LENVIMA [Suspect]
     Active Substance: LENVATINIB
     Route: 048
     Dates: start: 20160328, end: 20160420
  20. LUPRAC [Concomitant]
     Active Substance: TORSEMIDE

REACTIONS (4)
  - Somnolence [Recovering/Resolving]
  - Decreased appetite [Recovering/Resolving]
  - Vomiting [Recovered/Resolved]
  - Urinary tract infection [Recovering/Resolving]

NARRATIVE: CASE EVENT DATE: 20150819
